FAERS Safety Report 9572105 (Version 1)
Quarter: 2013Q4

REPORT INFORMATION
  Report Type: Spontaneous
  Country: US (occurrence: US)
  Receive Date: 20131001
  Receipt Date: 20131001
  Transmission Date: 20140711
  Serious: No
  Sender: FDA-Public Use
  Company Number: US-BIOGENIDEC-2013BI067112

PATIENT
  Age: 66 Year
  Sex: Female

DRUGS (11)
  1. TECFIDERA [Suspect]
     Indication: MULTIPLE SCLEROSIS
     Route: 048
     Dates: start: 201307
  2. AMPYRA [Concomitant]
  3. AVONEX [Concomitant]
     Indication: MULTIPLE SCLEROSIS
     Route: 030
  4. AVONEX [Concomitant]
     Indication: MULTIPLE SCLEROSIS
     Route: 030
     Dates: start: 19960101
  5. AMANTADINE [Concomitant]
  6. FLOMAX [Concomitant]
  7. KLONOPIN [Concomitant]
  8. LIPITOR [Concomitant]
  9. MECLIZINE [Concomitant]
  10. PRILOSEC [Concomitant]
  11. ZANAFLEX [Concomitant]

REACTIONS (2)
  - Flushing [Unknown]
  - Candida infection [Not Recovered/Not Resolved]
